FAERS Safety Report 8959162 (Version 2)
Quarter: 2012Q4

REPORT INFORMATION
  Report Type: 
  Country: DE (occurrence: BR)
  Receive Date: 20121212
  Receipt Date: 20121218
  Transmission Date: 20130627
  Serious: No
  Sender: FDA-Public Use
  Company Number: 2012SP003330

PATIENT
  Age: 32 Year
  Sex: Male
  Weight: 58 kg

DRUGS (4)
  1. OMNARIS NASAL SPRAY [Suspect]
     Indication: RHINITIS ALLERGIC
     Route: 045
     Dates: start: 20121121, end: 20121127
  2. OMNARIS NASAL SPRAY [Suspect]
     Indication: SECRETION DISCHARGE
     Route: 045
     Dates: start: 20121121, end: 20121127
  3. BILASTINE [Concomitant]
     Indication: RHINITIS ALLERGIC
     Route: 048
     Dates: start: 20121123, end: 20121127
  4. BILASTINE [Concomitant]
     Indication: SECRETION DISCHARGE
     Route: 048
     Dates: start: 20121123, end: 20121127

REACTIONS (3)
  - Hypotension [Recovered/Resolved]
  - Vertigo [Recovered/Resolved]
  - Somnolence [Recovered/Resolved]
